FAERS Safety Report 24909261 (Version 1)
Quarter: 2025Q1

REPORT INFORMATION
  Report Type: Spontaneous
  Country: FR (occurrence: FR)
  Receive Date: 20250131
  Receipt Date: 20250131
  Transmission Date: 20250409
  Serious: Yes (Other)
  Sender: RANBAXY
  Company Number: FR-SUN PHARMACEUTICAL INDUSTRIES LTD-2025RR-491946

PATIENT
  Age: 84 Year
  Sex: Female

DRUGS (6)
  1. ATORVASTATIN [Suspect]
     Active Substance: ATORVASTATIN
     Indication: Medication error
     Route: 048
     Dates: start: 20241014, end: 20241014
  2. ASPIRIN [Suspect]
     Active Substance: ASPIRIN
     Indication: Medication error
     Route: 048
     Dates: start: 20241014, end: 20241014
  3. PLAVIX [Suspect]
     Active Substance: CLOPIDOGREL BISULFATE
     Indication: Medication error
     Route: 048
     Dates: start: 20241014, end: 20241014
  4. MIANSERIN HYDROCHLORIDE [Suspect]
     Active Substance: MIANSERIN HYDROCHLORIDE
     Indication: Medication error
     Route: 048
     Dates: start: 20241014, end: 20241014
  5. FESOTERODINE [Suspect]
     Active Substance: FESOTERODINE
     Indication: Medication error
     Route: 048
     Dates: start: 20241014, end: 20241014
  6. ALPRAZOLAM [Concomitant]
     Active Substance: ALPRAZOLAM
     Indication: Depression
     Route: 048
     Dates: start: 20241014, end: 20241014

REACTIONS (3)
  - Cognitive disorder [Recovered/Resolved]
  - Hypertension [Recovered/Resolved]
  - Medication error [Recovered/Resolved]

NARRATIVE: CASE EVENT DATE: 20241014
